FAERS Safety Report 4376273-0 (Version None)
Quarter: 2004Q2

REPORT INFORMATION
  Report Type: 
  Country: None (occurrence: None)
  Receive Date: 20040608
  Receipt Date: 20030224
  Transmission Date: 20050107
  Serious: Yes (Other)
  Sender: FDA-Public Use
  Company Number: 200310660BCC

PATIENT
  Age: 49 Year
  Sex: Female
  Weight: 95.2554 kg

DRUGS (6)
  1. ALEVE [Suspect]
     Indication: ARTHRITIS
     Dosage: 220 MG, IRR, ORAL; 440 MG, BID, ORAL; 880 MG, QOD, ORAL
     Route: 048
     Dates: start: 20021101, end: 20030113
  2. ALEVE [Suspect]
     Indication: ARTHRITIS
     Dosage: 220 MG, IRR, ORAL; 440 MG, BID, ORAL; 880 MG, QOD, ORAL
     Route: 048
     Dates: start: 20030114, end: 20030131
  3. ALEVE [Suspect]
     Indication: ARTHRITIS
     Dosage: 220 MG, IRR, ORAL; 440 MG, BID, ORAL; 880 MG, QOD, ORAL
     Route: 048
     Dates: start: 20030201, end: 20030214
  4. AMARYL [Concomitant]
  5. BISOPROLOL [Concomitant]
  6. MONOPRIL [Concomitant]

REACTIONS (1)
  - BLOOD PRESSURE INCREASED [None]
